FAERS Safety Report 5942920-2 (Version None)
Quarter: 2008Q4

REPORT INFORMATION
  Report Type: 
  Country: None (occurrence: None)
  Receive Date: 20081106
  Receipt Date: 20081027
  Transmission Date: 20090506
  Serious: Yes (Life-Threatening, Hospitalization, Disabling, Other)
  Sender: FDA-Public Use
  Company Number: FR-ABBOTT-05P-056-0320442-00

PATIENT
  Sex: Female
  Weight: 60 kg

DRUGS (7)
  1. HUMIRA [Suspect]
     Indication: RHEUMATOID ARTHRITIS
     Route: 058
     Dates: start: 20040201, end: 20040801
  2. PREDNISONE TAB [Concomitant]
     Indication: RHEUMATOID ARTHRITIS
     Dates: start: 19990101
  3. KETOPROFEN [Concomitant]
     Indication: RHEUMATOID ARTHRITIS
     Dates: start: 19960101
  4. DIGOXIN [Concomitant]
     Indication: TACHYCARDIA
     Dates: start: 19930101
  5. VERAPAMIL HYDROCHLORIDE [Concomitant]
     Indication: TACHYCARDIA
     Dates: start: 19910101
  6. OMEPRAZOLE [Concomitant]
     Indication: PROPHYLAXIS AGAINST GASTROINTESTINAL ULCER
     Dates: start: 19990101
  7. COMMERCIAL HUMIRA [Concomitant]
     Indication: RHEUMATOID ARTHRITIS
     Route: 058
     Dates: start: 20031016

REACTIONS (17)
  - ADRENAL INSUFFICIENCY [None]
  - ARTHRITIS BACTERIAL [None]
  - BACTERAEMIA [None]
  - BRAIN ABSCESS [None]
  - CEREBRAL ARTERY EMBOLISM [None]
  - ENDOCARDITIS [None]
  - ENDOCARDITIS STAPHYLOCOCCAL [None]
  - FALL [None]
  - HAEMOGLOBIN DECREASED [None]
  - HYPERKALAEMIA [None]
  - HYPONATRAEMIA [None]
  - METABOLIC ACIDOSIS [None]
  - MITRAL VALVE INCOMPETENCE [None]
  - PLATELET COUNT DECREASED [None]
  - RENAL FAILURE ACUTE [None]
  - SEPSIS [None]
  - STAPHYLOCOCCAL INFECTION [None]
